FAERS Safety Report 9717027 (Version 2)
Quarter: 2015Q3

REPORT INFORMATION
  Report Type: Spontaneous
  Country: US (occurrence: US)
  Receive Date: 20131127
  Receipt Date: 20150804
  Transmission Date: 20151125
  Serious: No
  Sender: FDA-Public Use
  Company Number: US-GILEAD-2009-0020622

PATIENT
  Age: 67 Year
  Sex: Female
  Weight: 28.35 kg

DRUGS (12)
  1. SYNTHROID [Concomitant]
     Active Substance: LEVOTHYROXINE SODIUM
  2. CATAPRES [Concomitant]
     Active Substance: CLONIDINE HYDROCHLORIDE
  3. RENAGEL [Concomitant]
     Active Substance: SEVELAMER HYDROCHLORIDE
  4. COLACE [Concomitant]
     Active Substance: DOCUSATE SODIUM
  5. LETAIRIS [Suspect]
     Active Substance: AMBRISENTAN
     Indication: PULMONARY ARTERIAL HYPERTENSION
     Route: 048
     Dates: start: 20090207
  6. ATENOLOL. [Concomitant]
     Active Substance: ATENOLOL
  7. NIFEDIPINE. [Concomitant]
     Active Substance: NIFEDIPINE
  8. PRILOSEC [Concomitant]
     Active Substance: OMEPRAZOLE MAGNESIUM
  9. DIOVAN [Concomitant]
     Active Substance: VALSARTAN
  10. OXYGEN. [Concomitant]
     Active Substance: OXYGEN
  11. MINOXIDIL. [Concomitant]
     Active Substance: MINOXIDIL
  12. NEPHRO-VITE [Concomitant]

REACTIONS (4)
  - Nausea [Unknown]
  - Decreased appetite [Unknown]
  - Vomiting [Unknown]
  - Dyspnoea [Unknown]
